FAERS Safety Report 21925022 (Version 1)
Quarter: 2023Q1

REPORT INFORMATION
  Report Type: Report from Study
  Country: MX (occurrence: MX)
  Receive Date: 20230130
  Receipt Date: 20230130
  Transmission Date: 20230418
  Serious: Yes (Other)
  Sender: FDA-Public Use
  Company Number: MX-002147023-NVSC2023MX019375

PATIENT
  Age: 62 Year
  Sex: Male
  Weight: 95 kg

DRUGS (2)
  1. ENTRESTO [Suspect]
     Active Substance: SACUBITRIL\VALSARTAN
     Indication: Cardiac disorder
     Dosage: 1 DOSAGE FORM, BID (50 MG) FOR 15 DAYS
     Route: 048
     Dates: start: 202209, end: 202210
  2. ENTRESTO [Suspect]
     Active Substance: SACUBITRIL\VALSARTAN
     Dosage: 1 DOSAGE FORM, BID (100 MG) (STOPPED 10 DAYS AGO) 1 TABLET IN THE MORNING AND 1 TABLET AT NIGHT
     Route: 048
     Dates: start: 202210

REACTIONS (3)
  - Hepatic cirrhosis [Unknown]
  - Blood pressure decreased [Recovered/Resolved with Sequelae]
  - Renal impairment [Unknown]

NARRATIVE: CASE EVENT DATE: 20220901
